FAERS Safety Report 19221260 (Version 1)
Quarter: 2021Q2

REPORT INFORMATION
  Report Type: Report from Study
  Country: US (occurrence: US)
  Receive Date: 20210505
  Receipt Date: 20210505
  Transmission Date: 20210717
  Serious: Yes (Hospitalization, Other)
  Sender: FDA-Public Use
  Company Number: US-BRISTOL-MYERS SQUIBB COMPANY-BMS-2021-041902

PATIENT
  Age: 60 Year
  Sex: Male
  Weight: 70.8 kg

DRUGS (2)
  1. NIVOLUMAB [Suspect]
     Active Substance: NIVOLUMAB
     Indication: GLIOBLASTOMA MULTIFORME
     Dosage: 747 MILLIGRAM
     Route: 065
     Dates: start: 20210301, end: 20210329
  2. IPILIMUMAB [Suspect]
     Active Substance: IPILIMUMAB
     Indication: GLIOBLASTOMA MULTIFORME
     Dosage: 166 MILLIGRAM
     Route: 065
     Dates: start: 20210301, end: 20210329

REACTIONS (2)
  - Hypokalaemia [Recovering/Resolving]
  - Diverticulitis [Recovering/Resolving]

NARRATIVE: CASE EVENT DATE: 20210416
